FAERS Safety Report 9891955 (Version 1)
Quarter: 2014Q1

REPORT INFORMATION
  Report Type: Spontaneous
  Country: US (occurrence: US)
  Receive Date: 20140212
  Receipt Date: 20140212
  Transmission Date: 20141002
  Serious: Yes (Other)
  Sender: FDA-Public Use
  Company Number: US-BAYER-2014-018541

PATIENT
  Age: 56 Year
  Sex: Female
  Weight: 57 kg

DRUGS (2)
  1. ALKA-SELTZER PLUS COLD + COUGH FORMULA LIQUID GEL [Suspect]
     Indication: NASOPHARYNGITIS
     Dosage: 1 DF, PRN
     Route: 048
     Dates: start: 20131225, end: 20140131
  2. ASPIRIN [Concomitant]

REACTIONS (1)
  - Choking [Recovered/Resolved]
